FAERS Safety Report 7215963-9 (Version None)
Quarter: 2011Q1

REPORT INFORMATION
  Report Type: 
  Country: None (occurrence: None)
  Receive Date: 20110104
  Receipt Date: 20110104
  Transmission Date: 20110831
  Serious: Yes (Life-Threatening)
  Sender: FDA-Public Use
  Company Number: None

PATIENT
  Age: 61 Year
  Sex: Male
  Weight: 58.9676 kg

DRUGS (1)
  1. ALLEVE [Suspect]
     Dosage: PO
     Route: 048
     Dates: start: 20101202, end: 20101209

REACTIONS (2)
  - DEPRESSIVE SYMPTOM [None]
  - SUICIDAL IDEATION [None]
